FAERS Safety Report 13423393 (Version 3)
Quarter: 2017Q3

REPORT INFORMATION
  Report Type: Spontaneous
  Country: GR (occurrence: GR)
  Receive Date: 20170410
  Receipt Date: 20170930
  Transmission Date: 20171127
  Serious: Yes (Other)
  Sender: FDA-Public Use
  Company Number: GR-AMGEN-GRCSP2017009909

PATIENT
  Sex: Female

DRUGS (1)
  1. ENBREL [Suspect]
     Active Substance: ETANERCEPT
     Indication: RHEUMATOID ARTHRITIS
     Dosage: 50 MG, WEEKLY
     Route: 065

REACTIONS (4)
  - Arthralgia [Recovered/Resolved]
  - Arthritis [Unknown]
  - Condition aggravated [Recovered/Resolved]
  - Urinary tract infection [Recovered/Resolved]
